FAERS Safety Report 5899250-7 (Version None)
Quarter: 2008Q3

REPORT INFORMATION
  Report Type: 
  Country: None (occurrence: None)
  Receive Date: 20080925
  Receipt Date: 20080922
  Transmission Date: 20090109
  Serious: Yes (Hospitalization)
  Sender: FDA-Public Use
  Company Number: JP-ABBOTT-08P-087-0473410-00

PATIENT
  Sex: Female
  Weight: 35 kg

DRUGS (16)
  1. CLARITHROMYCIN [Suspect]
     Indication: MYCOBACTERIUM AVIUM COMPLEX INFECTION
     Route: 048
     Dates: start: 20040630, end: 20051014
  2. CLARITHROMYCIN [Suspect]
     Route: 048
     Dates: start: 20030908, end: 20040630
  3. CLARITHROMYCIN [Suspect]
     Route: 048
     Dates: start: 20051018, end: 20051031
  4. EURODIN [Suspect]
     Indication: INSOMNIA
     Route: 048
     Dates: start: 20040630
  5. EURODIN [Suspect]
     Route: 048
     Dates: start: 20051018, end: 20051031
  6. AMBROXOL HYDROCHLORIDE [Suspect]
     Indication: COUGH
     Route: 048
     Dates: start: 20030912, end: 20051031
  7. AMBROXOL HYDROCHLORIDE [Suspect]
     Indication: PRODUCTIVE COUGH
  8. CARBOCISTEINE [Suspect]
     Indication: COUGH
     Route: 048
     Dates: start: 20030912, end: 20051031
  9. CARBOCISTEINE [Suspect]
     Indication: PRODUCTIVE COUGH
  10. ETHYL LOFLAZEPATE [Suspect]
     Indication: INSOMNIA
     Route: 048
     Dates: start: 20040630
  11. ETHYL LOFLAZEPATE [Suspect]
     Route: 048
     Dates: start: 20051018, end: 20051031
  12. REBAMIPIDE [Suspect]
     Indication: GASTRITIS
     Route: 048
     Dates: start: 20040630
  13. REBAMIPIDE [Suspect]
     Route: 048
     Dates: start: 20051018, end: 20051031
  14. AMLODIPINE BESYLATE [Concomitant]
     Indication: HYPERTENSION
     Route: 048
     Dates: start: 20040630
  15. AMLODIPINE BESYLATE [Concomitant]
     Route: 048
     Dates: start: 20051018
  16. HACHIAZULE [Concomitant]
     Indication: OROPHARYNGEAL PAIN
     Dates: start: 20031105

REACTIONS (3)
  - COLITIS ULCERATIVE [None]
  - MELAENA [None]
  - PSEUDOMEMBRANOUS COLITIS [None]
